FAERS Safety Report 10083340 (Version 1)
Quarter: 2014Q2

REPORT INFORMATION
  Report Type: Spontaneous
  Country: US (occurrence: US)
  Receive Date: 20140417
  Receipt Date: 20140417
  Transmission Date: 20141212
  Serious: Yes (Other)
  Sender: FDA-Public Use
  Company Number: US-ROCHE-1379421

PATIENT
  Sex: Female

DRUGS (5)
  1. KADCYLA [Suspect]
     Indication: BREAST CANCER METASTATIC
     Dosage: FIRST DOSE
     Route: 042
     Dates: start: 2014, end: 2014
  2. KADCYLA [Suspect]
     Dosage: SECOND DOSE
     Route: 042
     Dates: start: 20140319
  3. HERCEPTIN [Suspect]
     Indication: BREAST CANCER METASTATIC
     Route: 042
     Dates: end: 20140227
  4. XELODA [Suspect]
     Indication: BREAST CANCER METASTATIC
     Route: 048
     Dates: end: 20140227
  5. ABRAXANE [Suspect]
     Indication: BREAST CANCER METASTATIC
     Route: 065

REACTIONS (4)
  - Cholangitis [Unknown]
  - Fatigue [Not Recovered/Not Resolved]
  - Pyrexia [Not Recovered/Not Resolved]
  - Blood bilirubin increased [Unknown]
